FAERS Safety Report 15788935 (Version 1)
Quarter: 2019Q1

REPORT INFORMATION
  Report Type: Spontaneous
  Country: AT (occurrence: AT)
  Receive Date: 20190104
  Receipt Date: 20190104
  Transmission Date: 20190417
  Serious: Yes (Other)
  Sender: FDA-Public Use
  Company Number: PHHY2018AT195238

PATIENT
  Age: 51 Year
  Sex: Male

DRUGS (2)
  1. ACETYLSALICYLIC ACID [Suspect]
     Active Substance: ASPIRIN
     Indication: RIGHT VENTRICULAR DYSFUNCTION
     Dosage: 500 MG, UNK
     Route: 065
  2. HEPARIN [Suspect]
     Active Substance: HEPARIN SODIUM
     Indication: RIGHT VENTRICULAR DYSFUNCTION
     Dosage: 100 IU/KG, UNK
     Route: 042

REACTIONS (4)
  - Dizziness [Unknown]
  - Device related thrombosis [Unknown]
  - Haematoma [Unknown]
  - Dyspnoea [Unknown]
